FAERS Safety Report 25183423 (Version 1)
Quarter: 2025Q2

REPORT INFORMATION
  Report Type: Spontaneous
  Country: US (occurrence: None)
  Receive Date: 20250409
  Receipt Date: 20250409
  Transmission Date: 20250717
  Serious: Yes (Hospitalization)
  Sender: FDA-CTU
  Company Number: None

PATIENT
  Sex: Female

DRUGS (6)
  1. DUPIXENT [Suspect]
     Active Substance: DUPILUMAB
     Indication: Chronic sinusitis
     Route: 058
     Dates: start: 20240523
  2. BACLOFEN [Concomitant]
     Active Substance: BACLOFEN
  3. FERROUS SULFATE [Concomitant]
     Active Substance: FERROUS SULFATE
  4. GABAPENTIN [Concomitant]
     Active Substance: GABAPENTIN
  5. VITAMINS [Concomitant]
     Active Substance: VITAMINS
  6. TALTZ [Concomitant]
     Active Substance: IXEKIZUMAB

REACTIONS (2)
  - Asthma [None]
  - Quality of life decreased [None]
